FAERS Safety Report 24318442 (Version 1)
Quarter: 2024Q3

REPORT INFORMATION
  Report Type: Spontaneous
  Country: US (occurrence: US)
  Receive Date: 20240913
  Receipt Date: 20240913
  Transmission Date: 20241017
  Serious: No
  Sender: MERZ
  Company Number: US-MRZWEB-2024080000044

PATIENT

DRUGS (4)
  1. XEOMIN [Suspect]
     Active Substance: INCOBOTULINUMTOXINA
     Indication: Skin cosmetic procedure
  2. XEOMIN [Suspect]
     Active Substance: INCOBOTULINUMTOXINA
     Indication: Skin wrinkling
     Dosage: 32 025
  3. DYSPORT [BOTULINUM TOXIN TYPE A HAEMAGGLUTININ COMPLEX] [Concomitant]
     Indication: Skin cosmetic procedure
     Dosage: 32 025
  4. DYSPORT [BOTULINUM TOXIN TYPE A HAEMAGGLUTININ COMPLEX] [Concomitant]
     Indication: Skin wrinkling

REACTIONS (3)
  - Drug ineffective [Unknown]
  - Therapeutic response decreased [Unknown]
  - Underdose [Unknown]
